FAERS Safety Report 9265669 (Version 6)
Quarter: 2014Q1

REPORT INFORMATION
  Report Type: Spontaneous
  Country: US (occurrence: US)
  Receive Date: 20130501
  Receipt Date: 20140310
  Transmission Date: 20141002
  Serious: Yes (Hospitalization, Other)
  Sender: FDA-Public Use
  Company Number: US-009507513-1304USA016981

PATIENT
  Sex: Female
  Weight: 69.39 kg

DRUGS (13)
  1. FOSAMAX [Suspect]
     Indication: OSTEOPENIA
     Dosage: 35 MG, QW
     Route: 048
     Dates: start: 200107, end: 200710
  2. FOSAMAX [Suspect]
     Dosage: 70 MG, QW
     Route: 048
     Dates: start: 200107, end: 200710
  3. BONIVA [Suspect]
     Indication: OSTEOPENIA
     Dosage: 150 MG, QM
     Route: 048
     Dates: start: 200903, end: 201010
  4. EVISTA [Concomitant]
     Indication: OSTEOPENIA
     Dosage: UNK
     Dates: start: 199907, end: 200207
  5. HYDROCHLOROTHIAZIDE [Concomitant]
     Indication: LOCAL SWELLING
     Dosage: 25-50MG, PRN
     Route: 048
     Dates: start: 1995
  6. CENTRUM SILVER [Concomitant]
     Dosage: UNK, QD
     Route: 048
  7. ASPIRIN [Concomitant]
     Dosage: 325 MG, UNK
     Route: 048
  8. ASCORBIC ACID [Concomitant]
     Dosage: 500 MG, QD
     Route: 048
  9. VITAMIN E [Concomitant]
     Dosage: 400 IU, QD
     Route: 048
  10. FOLIC ACID [Concomitant]
     Dosage: 500 MICROGRAM, QD
     Route: 048
  11. SLO NIACIN [Concomitant]
     Dosage: 500 MG, BID
     Route: 048
  12. LIPITOR [Concomitant]
     Indication: BLOOD CHOLESTEROL INCREASED
     Dosage: 10 MG, QD
     Route: 048
     Dates: start: 200307, end: 201010
  13. BENADRYL [Concomitant]
     Indication: HYPERSENSITIVITY
     Dosage: 25 MG, PRN
     Route: 048

REACTIONS (27)
  - Femur fracture [Recovered/Resolved]
  - Intramedullary rod insertion [Unknown]
  - External fixation of fracture [Unknown]
  - Hysterectomy [Unknown]
  - Salpingo-oophorectomy bilateral [Unknown]
  - Procedural haemorrhage [Unknown]
  - Post procedural haematoma [Unknown]
  - Haematoma infection [Unknown]
  - Type 2 diabetes mellitus [Unknown]
  - Arthritis [Unknown]
  - Tuberculin test positive [Unknown]
  - Ovarian cyst [Unknown]
  - Blood potassium decreased [Unknown]
  - Cyst [Unknown]
  - Hyperkeratosis [Unknown]
  - Weight increased [Unknown]
  - Synovial cyst [Unknown]
  - Tenderness [Unknown]
  - Hypertension [Unknown]
  - Gait disturbance [Unknown]
  - Anaemia [Recovered/Resolved]
  - Symphysiolysis [Unknown]
  - Hypercalcaemia [Unknown]
  - Cataract [Unknown]
  - Back pain [Unknown]
  - Arthralgia [Unknown]
  - Arthralgia [Unknown]
